FAERS Safety Report 9378643 (Version 3)
Quarter: 2013Q3

REPORT INFORMATION
  Report Type: Other
  Country: US (occurrence: US)
  Receive Date: 20130702
  Receipt Date: 20130808
  Transmission Date: 20140515
  Serious: Yes (Other)
  Sender: FDA-Public Use
  Company Number: US-RANBAXY-2013US-70848

PATIENT
  Age: 24 Year
  Sex: Female

DRUGS (3)
  1. ABSORICA [Suspect]
     Indication: ACNE
     Dosage: 20 MG, QD
     Route: 065
     Dates: start: 20130524, end: 20130617
  2. RU 46 [Concomitant]
     Indication: ABORTION INDUCED
     Dosage: UNK
     Route: 048
     Dates: start: 20130617, end: 20130617
  3. RU486 [Concomitant]
     Indication: ABORTION INDUCED
     Dosage: UNK
     Route: 065
     Dates: start: 20130617, end: 20130618

REACTIONS (2)
  - Abortion induced [Recovered/Resolved]
  - Exposure during pregnancy [Recovered/Resolved]
